FAERS Safety Report 6632984-5 (Version None)
Quarter: 2010Q1

REPORT INFORMATION
  Report Type: 
  Country: None (occurrence: None)
  Receive Date: 20100312
  Receipt Date: 20100209
  Transmission Date: 20100710
  Serious: No
  Sender: FDA-Public Use
  Company Number: US-BAYER-201011970BCC

PATIENT
  Sex: Female

DRUGS (1)
  1. ALEVE-D SINUS + COLD [Suspect]
     Indication: NASOPHARYNGITIS
     Route: 048
     Dates: start: 20100101

REACTIONS (1)
  - DRUG SCREEN POSITIVE [None]
